FAERS Safety Report 23407329 (Version 1)
Quarter: 2024Q1

REPORT INFORMATION
  Report Type: Spontaneous
  Country: US (occurrence: US)
  Receive Date: 20240116
  Receipt Date: 20240116
  Transmission Date: 20240410
  Serious: No
  Sender: FDA-Public Use
  Company Number: US-STRIDES ARCOLAB LIMITED-2023SP012944

PATIENT

DRUGS (5)
  1. HYDROCODONE BITARTRATE AND ACETAMINOPHEN [Suspect]
     Active Substance: ACETAMINOPHEN\HYDROCODONE BITARTRATE
     Indication: Product used for unknown indication
     Dosage: UNK
     Route: 065
  2. EPINEPHRINE [Suspect]
     Active Substance: EPINEPHRINE
     Indication: Product used for unknown indication
     Dosage: UNK
     Route: 065
  3. PROCAINE [Suspect]
     Active Substance: PROCAINE
     Indication: Product used for unknown indication
     Dosage: UNK
     Route: 065
  4. IBRANCE [Concomitant]
     Active Substance: PALBOCICLIB
     Indication: Hormone receptor positive HER2 negative breast cancer
     Dosage: UNK, TAKE 1 CAPSULE (125 MG TOTAL) BY MOUTH DAILY 3 WEEKS ON AND 1 WEEK OFF EACH 28-DAY CYCLE
     Route: 048
     Dates: start: 20230725
  5. IBRANCE [Concomitant]
     Active Substance: PALBOCICLIB
     Indication: Breast cancer

REACTIONS (3)
  - Nausea [Unknown]
  - Vomiting [Unknown]
  - Drug hypersensitivity [Unknown]
